FAERS Safety Report 22659663 (Version 6)
Quarter: 2024Q3

REPORT INFORMATION
  Report Type: Spontaneous
  Country: FR (occurrence: FR)
  Receive Date: 20230630
  Receipt Date: 20240709
  Transmission Date: 20241016
  Serious: Yes (Life-Threatening, Hospitalization, Other)
  Sender: SK LIFE SCIENCE
  Company Number: FR-ACRAF SpA-2023-030996

PATIENT

DRUGS (5)
  1. XCOPRI [Suspect]
     Active Substance: CENOBAMATE
     Indication: Epilepsy
     Dosage: 200 MILLIGRAM
     Route: 048
     Dates: start: 20221222
  2. XCOPRI [Suspect]
     Active Substance: CENOBAMATE
     Dosage: 150 MILLIGRAM
     Route: 048
     Dates: start: 202303
  3. XCOPRI [Suspect]
     Active Substance: CENOBAMATE
     Dosage: 200 MILLIGRAM
     Route: 048
     Dates: start: 20230519
  4. ZONEGRAN [Concomitant]
     Active Substance: ZONISAMIDE
     Indication: Product used for unknown indication
     Dosage: UNK
     Route: 065
  5. FYCOMPA [Concomitant]
     Active Substance: PERAMPANEL
     Indication: Product used for unknown indication
     Dosage: 6 MG IN THE EVENING
     Route: 065

REACTIONS (15)
  - Toxicity to various agents [Recovered/Resolved]
  - Coma [Recovered/Resolved]
  - Gamma-glutamyltransferase increased [Unknown]
  - Dysphonia [Unknown]
  - Suicide attempt [Recovered/Resolved]
  - Asthenia [Recovering/Resolving]
  - Pain in extremity [Unknown]
  - Myokymia [Unknown]
  - Dry skin [Unknown]
  - Pruritus [Unknown]
  - Headache [Unknown]
  - Fatigue [Unknown]
  - Dizziness [Recovering/Resolving]
  - Vision blurred [Unknown]
  - Vertigo [Unknown]

NARRATIVE: CASE EVENT DATE: 20230301
